FAERS Safety Report 24278774 (Version 1)
Quarter: 2024Q3

REPORT INFORMATION
  Report Type: Spontaneous
  Country: US (occurrence: US)
  Receive Date: 20240903
  Receipt Date: 20240903
  Transmission Date: 20241016
  Serious: Yes (Other)
  Sender: IOVANCE BIOTHERAPEUTICS
  Company Number: US-IOVANCE BIOTHERAPEUTICS INC.-IOV2024000013

PATIENT

DRUGS (22)
  1. PROLEUKIN [Suspect]
     Active Substance: ALDESLEUKIN
     Dosage: UNK
     Route: 042
     Dates: start: 20240614, end: 20240616
  2. LIFILEUCEL [Suspect]
     Active Substance: LIFILEUCEL
     Indication: Metastatic malignant melanoma
     Dosage: UNK
     Dates: start: 20240613
  3. ACETAMINOPHEN [Concomitant]
     Active Substance: ACETAMINOPHEN
     Indication: Product used for unknown indication
     Dosage: 1,000 MG/100ML
     Route: 042
     Dates: start: 20240614
  4. ACETAMINOPHEN [Concomitant]
     Active Substance: ACETAMINOPHEN
     Dosage: 650 MILLIGRAM, 4HRS FOR 21 DOSES
     Route: 048
     Dates: start: 20240614
  5. ACYCLOVIR [Concomitant]
     Active Substance: ACYCLOVIR
     Indication: Product used for unknown indication
     Dosage: 400 MILLIGRAM, BID
     Route: 048
     Dates: start: 20240614
  6. CEFEPIME [Concomitant]
     Active Substance: CEFEPIME HYDROCHLORIDE
     Indication: Product used for unknown indication
     Dosage: 2G/100ML, 12 HRS
     Route: 042
     Dates: start: 20240614, end: 20240619
  7. FAMOTIDINE [Concomitant]
     Active Substance: FAMOTIDINE
     Indication: Product used for unknown indication
     Dosage: 20 MILLIGRAM, 12 HRS
     Route: 048
     Dates: start: 20240614, end: 20240619
  8. FILGRASTIM [Concomitant]
     Active Substance: FILGRASTIM
     Indication: Product used for unknown indication
     Dosage: 480 MICROGRAM, QD
     Route: 058
     Dates: start: 20240614, end: 20240619
  9. FLUCONAZOLE [Concomitant]
     Active Substance: FLUCONAZOLE
     Indication: Product used for unknown indication
     Dosage: 400 MILLIGRAM, 24HRS
     Route: 048
     Dates: start: 20240614, end: 20240619
  10. FUROSEMIDE [Concomitant]
     Active Substance: FUROSEMIDE
     Indication: Product used for unknown indication
     Dosage: 40 40 MG/4ML
     Route: 042
     Dates: start: 20240614, end: 20240619
  11. METRONIDAZOLE [Concomitant]
     Active Substance: METRONIDAZOLE
     Indication: Product used for unknown indication
     Dosage: 500 MILLIGRAM, Q 8HRS
     Route: 048
  12. ONDANSETRON [Concomitant]
     Active Substance: ONDANSETRON
     Indication: Product used for unknown indication
     Dosage: 8 MG/4ML, Q 12HRS
     Route: 042
     Dates: start: 20240614, end: 20240616
  13. OXYCODONE [Concomitant]
     Active Substance: OXYCODONE
     Indication: Product used for unknown indication
     Dosage: 10 MILLIGRAM, TID
     Route: 048
     Dates: start: 20240614, end: 20240617
  14. PREGABALIN [Concomitant]
     Active Substance: PREGABALIN
     Indication: Product used for unknown indication
     Dosage: 100 MILLIGRAM, TID
     Route: 048
     Dates: start: 20240614, end: 20240619
  15. CARBOXYMETHYLCELLULOSE SODIUM\DEVICE\SORBINICATE [Concomitant]
     Active Substance: CARBOXYMETHYLCELLULOSE SODIUM\DEVICE\SORBINICATE
     Indication: Product used for unknown indication
     Dosage: 30 UNK, QID
     Route: 048
     Dates: start: 20240614, end: 20240619
  16. VANCOMYCIN [Concomitant]
     Active Substance: VANCOMYCIN
     Indication: Product used for unknown indication
     Dosage: 1000 MG/200 ML, Q 12HRS
     Route: 042
     Dates: start: 20240614
  17. VANCOMYCIN [Concomitant]
     Active Substance: VANCOMYCIN
     Dosage: 1250 MG/250 ML, Q 12HRS
     Route: 042
     Dates: start: 20240614, end: 20240617
  18. DIPHENHYDRAMINE HYDROCHLORIDE\LIDOCAINE HYDROCHLORIDE\NYSTATIN [Concomitant]
     Active Substance: DIPHENHYDRAMINE HYDROCHLORIDE\LIDOCAINE HYDROCHLORIDE\NYSTATIN
     Indication: Product used for unknown indication
     Dosage: 5 MILLILITER, PRN
     Dates: start: 20240614, end: 20240617
  19. HYDROMORPHONE [Concomitant]
     Active Substance: HYDROMORPHONE
     Indication: Product used for unknown indication
     Dosage: 0.5 MILLIGRAM, PRN
     Route: 042
     Dates: start: 20240614
  20. MAGNESIUM SULFATE [Concomitant]
     Active Substance: MAGNESIUM SULFATE\MAGNESIUM SULFATE HEPTAHYDRATE
     Indication: Product used for unknown indication
     Dosage: 2G/50 ML
     Route: 042
     Dates: start: 20240614
  21. TRAMADOL [Concomitant]
     Active Substance: TRAMADOL\TRAMADOL HYDROCHLORIDE
     Indication: Pain
     Dosage: 100 MILLIGRAM, Q 4HRS PRN
     Route: 048
     Dates: start: 20240614
  22. SODIUM CHLORIDE [Concomitant]
     Active Substance: SODIUM CHLORIDE
     Indication: Product used for unknown indication
     Dosage: 250 MILLILITER, RATE 30ML/HR CONTINUOUS INFUSION-
     Dates: start: 20240614, end: 20240619

REACTIONS (3)
  - Cytokine release syndrome [Unknown]
  - Toxicity to various agents [Unknown]
  - Aphasia [Unknown]

NARRATIVE: CASE EVENT DATE: 20240614
